FAERS Safety Report 8235634-X (Version None)
Quarter: 2012Q1

REPORT INFORMATION
  Report Type: 
  Country: None (occurrence: None)
  Receive Date: 20120323
  Receipt Date: 20120312
  Transmission Date: 20120608
  Serious: Yes (Other)
  Sender: FDA-Public Use
  Company Number: COL_11198_2012

PATIENT
  Sex: Female

DRUGS (1)
  1. COLGATE MAX FRESH WITH MINI BREATH STRIPS CLEAN MINT WITH WHITENING [Suspect]
     Indication: DENTAL CARIES
     Dosage: COVERED THE HEAD OF TOOTHBRUSH/ 1 TIME PER DAY/ ORAL
     Route: 048
     Dates: start: 20120227, end: 20120305

REACTIONS (3)
  - TONGUE DISORDER [None]
  - RASH [None]
  - AGEUSIA [None]
